FAERS Safety Report 7197007-0 (Version None)
Quarter: 2010Q4

REPORT INFORMATION
  Report Type: 
  Country: None (occurrence: None)
  Receive Date: 20101224
  Receipt Date: 20101217
  Transmission Date: 20110411
  Serious: Yes (Other)
  Sender: FDA-Public Use
  Company Number: US-ELI_LILLY_AND_COMPANY-US201012004743

PATIENT
  Sex: Male

DRUGS (23)
  1. HUMALOG [Suspect]
     Indication: TYPE 2 DIABETES MELLITUS
     Dosage: UNK, AS NEEDED
  2. LANTUS [Concomitant]
     Dosage: 15 U, EACH EVENING
  3. AMIODARONE [Concomitant]
     Dosage: UNK, EACH MORNING
  4. LASIX [Concomitant]
     Dosage: UNK, EACH MORNING
  5. EFFEXOR [Concomitant]
     Dosage: UNK, EACH MORNING
  6. VENLAFAXINE [Concomitant]
     Dosage: UNK, EACH MORNING
  7. LIPITOR [Concomitant]
     Dosage: UNK, EACH MORNING
  8. RANITIDINE [Concomitant]
     Dosage: UNK, EACH MORNING
  9. ZANTAC [Concomitant]
     Dosage: UNK, EACH MORNING
  10. FOLIC ACID [Concomitant]
     Dosage: UNK, EACH MORNING
  11. LISINOPRIL [Concomitant]
     Dosage: UNK, EACH MORNING
  12. SEROQUEL [Concomitant]
     Dosage: UNK, EACH MORNING
  13. AVODART [Concomitant]
     Dosage: UNK, EACH MORNING
  14. FINASTERIDE [Concomitant]
     Dosage: UNK, EACH MORNING
  15. PROTONIX [Concomitant]
     Dosage: UNK, EACH MORNING
  16. PANTOPRAZOLE [Concomitant]
     Dosage: UNK, EACH MORNING
  17. LOPRESSOR [Concomitant]
     Dosage: UNK, EACH MORNING
  18. METOPROLOL TARTRATE [Concomitant]
     Dosage: UNK, EACH MORNING
  19. ASPIRIN [Concomitant]
     Dosage: UNK, EACH MORNING
  20. IRON [Concomitant]
     Dosage: UNK, EACH MORNING
  21. CALCIUM [Concomitant]
     Dosage: UNK, EACH MORNING
  22. VITAMIN D [Concomitant]
     Dosage: UNK, EACH MORNING
  23. VICTOZA [Concomitant]
     Dosage: 1.9 D/F, EACH MORNING

REACTIONS (9)
  - ACCIDENTAL OVERDOSE [None]
  - BLOOD GLUCOSE DECREASED [None]
  - DEAFNESS UNILATERAL [None]
  - DIZZINESS [None]
  - DRUG DOSE OMISSION [None]
  - FEELING ABNORMAL [None]
  - HYPOACUSIS [None]
  - INCORRECT DOSE ADMINISTERED [None]
  - MEMORY IMPAIRMENT [None]
